FAERS Safety Report 8424171-5 (Version None)
Quarter: 2012Q2

REPORT INFORMATION
  Report Type: 
  Country: None (occurrence: None)
  Receive Date: 20120608
  Receipt Date: 20120221
  Transmission Date: 20120825
  Serious: No
  Sender: FDA-Public Use
  Company Number: US-ASTRAZENECA-2012SE13172

PATIENT
  Sex: Male

DRUGS (3)
  1. PULMICORT FLEXHALER [Suspect]
     Indication: RALES
     Route: 055
  2. PULMICORT FLEXHALER [Suspect]
     Indication: DYSPNOEA
     Route: 055
  3. COMBIZET [Concomitant]

REACTIONS (3)
  - APHONIA [None]
  - OFF LABEL USE [None]
  - DYSPHONIA [None]
